FAERS Safety Report 22103463 (Version 1)
Quarter: 2023Q1

REPORT INFORMATION
  Report Type: Spontaneous
  Country: US (occurrence: None)
  Receive Date: 20230316
  Receipt Date: 20230316
  Transmission Date: 20230418
  Serious: Yes (Congenital Anomaly)
  Sender: FDA-Public Use
  Company Number: None

PATIENT
  Age: 32 Year
  Sex: Female
  Weight: 64.8 kg

DRUGS (4)
  1. OCREVUS [Suspect]
     Active Substance: OCRELIZUMAB
     Indication: Multiple sclerosis
     Dates: start: 20200320, end: 20220621
  2. PRENATAL VIATAMINS [Concomitant]
  3. VIATAMIN D [Concomitant]
  4. OMEGA 3 [Concomitant]
     Active Substance: CAPSAICIN

REACTIONS (5)
  - Infusion related reaction [None]
  - Pregnancy [None]
  - Exposure during pregnancy [None]
  - Congenital central nervous system anomaly [None]
  - Abortion induced [None]

NARRATIVE: CASE EVENT DATE: 20230215
